FAERS Safety Report 10474431 (Version 10)
Quarter: 2015Q1

REPORT INFORMATION
  Report Type: Report from Study
  Country: US (occurrence: US)
  Receive Date: 20140924
  Receipt Date: 20150205
  Transmission Date: 20150720
  Serious: Yes (Death, Hospitalization)
  Sender: FDA-Public Use
  Company Number: US-009507513-1409USA008152

PATIENT
  Age: 79 Year
  Sex: Male

DRUGS (16)
  1. PEMBROLIZUMAB. [Suspect]
     Active Substance: PEMBROLIZUMAB
     Indication: METASTATIC MALIGNANT MELANOMA
     Dosage: 2 MG/KG, Q3W
     Route: 042
     Dates: start: 20140730, end: 20141001
  2. METFORMIN [Concomitant]
     Active Substance: METFORMIN HYDROCHLORIDE
     Indication: DIABETES MELLITUS
     Dosage: 500MG, BID
     Route: 048
     Dates: start: 20111003
  3. ATORVASTATIN [Concomitant]
     Active Substance: ATORVASTATIN
     Dosage: 20 MG, QD
     Route: 048
     Dates: start: 20140115
  4. CYANOCOBALAMIN. [Concomitant]
     Active Substance: CYANOCOBALAMIN
     Indication: ANAEMIA MACROCYTIC
     Dosage: UNK, QW
     Route: 058
     Dates: start: 20140115
  5. ATORVASTATIN [Concomitant]
     Active Substance: ATORVASTATIN
     Indication: BLOOD CHOLESTEROL
     Dosage: 20 MG, QD
     Route: 003
     Dates: start: 20140115
  6. METOPROLOL [Concomitant]
     Active Substance: METOPROLOL
     Indication: HYPERTENSION
     Dosage: 50MG, QD
     Route: 048
     Dates: start: 20121113
  7. DIGITALIS [Concomitant]
     Active Substance: DIGITALIS
     Indication: ATRIAL FIBRILLATION
     Dosage: 0.325 MG, QD
     Route: 048
     Dates: start: 20140115
  8. METOPROLOL [Concomitant]
     Active Substance: METOPROLOL
     Dosage: 50MG, QD
     Route: 048
     Dates: start: 20140115
  9. METOPROLOL [Concomitant]
     Active Substance: METOPROLOL
     Dosage: 25 MG, BID. STREGNTH:25MG.
     Route: 048
     Dates: start: 20141113
  10. SODIUM CHLORIDE. [Concomitant]
     Active Substance: SODIUM CHLORIDE
     Dosage: UNK, QH, FREQUENCY 60 MINUTES, DAILY DOSE 500 ML
     Route: 042
     Dates: start: 20141116
  11. METFORMIN [Concomitant]
     Active Substance: METFORMIN HYDROCHLORIDE
     Dosage: 500 MG, BID
     Route: 048
     Dates: start: 20140115
  12. ASPIRIN. [Concomitant]
     Active Substance: ASPIRIN
     Indication: ATRIAL FIBRILLATION
     Dosage: 81 MG, QD
     Route: 048
     Dates: start: 20111027
  13. ASPIRIN. [Concomitant]
     Active Substance: ASPIRIN
     Dosage: 81 MG, QD
     Route: 048
     Dates: start: 20140115
  14. ATORVASTATIN [Concomitant]
     Active Substance: ATORVASTATIN
     Indication: HYPERTENSION
     Dosage: 20 MG, QD
     Route: 048
     Dates: start: 20121120
  15. PERIDEX (CHLORHEXIDINE GLUCONATE) [Concomitant]
     Indication: ANTIBIOTIC THERAPY
     Dosage: 5 ML, BID
     Route: 048
     Dates: start: 20141211
  16. METRONIDAZOLE. [Concomitant]
     Active Substance: METRONIDAZOLE
     Indication: ANTIBIOTIC THERAPY
     Dosage: 500 MG, Q6H, TOTAL DAILY DOSE: 500MG.
     Route: 003
     Dates: start: 20141211

REACTIONS (8)
  - Cellulitis [Recovering/Resolving]
  - Face oedema [Recovering/Resolving]
  - Failure to thrive [Fatal]
  - Fatigue [Recovered/Resolved]
  - Fatigue [Fatal]
  - Anaemia [Recovered/Resolved]
  - Failure to thrive [Fatal]
  - Malignant neoplasm progression [Fatal]

NARRATIVE: CASE EVENT DATE: 20141022
